FAERS Safety Report 11717511 (Version 1)
Quarter: 2015Q4

REPORT INFORMATION
  Report Type: Spontaneous
  Country: AR (occurrence: AR)
  Receive Date: 20151110
  Receipt Date: 20151110
  Transmission Date: 20160304
  Serious: Yes (Other)
  Sender: FDA-Public Use
  Company Number: AR-AMGEN-ARGSP2015117906

PATIENT
  Age: 53 Year
  Sex: Female

DRUGS (1)
  1. ENBREL [Suspect]
     Active Substance: ETANERCEPT
     Indication: RHEUMATOID ARTHRITIS
     Dosage: 50 MG, WEEKLY
     Route: 065
     Dates: start: 20121122

REACTIONS (7)
  - Uveitis [Recovering/Resolving]
  - Dry mouth [Recovered/Resolved]
  - Eye disorder [Recovering/Resolving]
  - Eye ulcer [Recovering/Resolving]
  - Hypersensitivity [Recovered/Resolved]
  - Dry eye [Recovering/Resolving]
  - Nasal dryness [Recovered/Resolved]

NARRATIVE: CASE EVENT DATE: 2012
